FAERS Safety Report 5147544-5 (Version None)
Quarter: 2006Q4

REPORT INFORMATION
  Report Type: 
  Country: None (occurrence: None)
  Receive Date: 20061106
  Receipt Date: 20061024
  Transmission Date: 20070319
  Serious: Yes (Other)
  Sender: FDA-Public Use
  Company Number: 2006130358

PATIENT
  Age: 52 Year
  Sex: Female
  Weight: 65.7716 kg

DRUGS (7)
  1. CHANTIX [Suspect]
     Indication: SMOKING CESSATION THERAPY
     Dates: start: 20060101, end: 20061001
  2. LEXAPRO [Concomitant]
  3. WELLBUTRIN [Concomitant]
  4. AVALIDE [Concomitant]
  5. MIRAPEX [Concomitant]
  6. ROZEREM [Concomitant]
  7. ALL OTHER THERAPEUTIC PRODUCTS [Concomitant]

REACTIONS (6)
  - ABNORMAL BEHAVIOUR [None]
  - FEELING ABNORMAL [None]
  - HALLUCINATION, VISUAL [None]
  - SMOKER [None]
  - STRESS [None]
  - TREATMENT NONCOMPLIANCE [None]
